FAERS Safety Report 13181050 (Version 1)
Quarter: 2017Q1

REPORT INFORMATION
  Report Type: Spontaneous
  Country: US (occurrence: US)
  Receive Date: 20170202
  Receipt Date: 20170202
  Transmission Date: 20170428
  Serious: No
  Sender: FDA-Public Use
  Company Number: US-SMITH AND NEPHEW, INC-2016SMT00400

PATIENT
  Age: 61 Year
  Sex: Female
  Weight: 90.7 kg

DRUGS (3)
  1. REGRANEX [Suspect]
     Active Substance: BECAPLERMIN
     Indication: DIABETIC FOOT
     Dosage: UNK UNK, 1X/DAY
     Route: 061
  2. UNSPECIFIED THYROID MEDICINE [Concomitant]
  3. UNSPECIFIED CHOLESTEROL MEDICINE [Concomitant]

REACTIONS (1)
  - Wound complication [Unknown]

NARRATIVE: CASE EVENT DATE: 20160501
